FAERS Safety Report 6729950-8 (Version None)
Quarter: 2010Q2

REPORT INFORMATION
  Report Type: 
  Country: None (occurrence: None)
  Receive Date: 20100518
  Receipt Date: 20100517
  Transmission Date: 20101027
  Serious: Yes (Hospitalization, Other)
  Sender: FDA-Public Use
  Company Number: AU-ROXANE LABORATORIES, INC.-2010-DE-02711GD

PATIENT
  Age: 61 Year
  Sex: Female

DRUGS (1)
  1. ORAMORPH SR [Suspect]
     Indication: PAIN
     Dosage: FORMULATION: SUSTAINED-RELEASE, ESCALATED TO 40 MG BID

REACTIONS (2)
  - DRUG INEFFECTIVE [None]
  - SOMNOLENCE [None]
